FAERS Safety Report 16042961 (Version 1)
Quarter: 2019Q2

REPORT INFORMATION
  Report Type: Spontaneous
  Country: US (occurrence: US)
  Receive Date: 20190306
  Receipt Date: 20190306
  Transmission Date: 20190711
  Serious: Yes (Life-Threatening, Other)
  Sender: FDA-Public Use
  Company Number: None

PATIENT
  Age: 30 Year
  Sex: Female
  Weight: 66.15 kg

DRUGS (2)
  1. RIFAPENTINE [Suspect]
     Active Substance: RIFAPENTINE
     Indication: LATENT TUBERCULOSIS
     Dosage: ?          QUANTITY:6 TABLET(S);OTHER FREQUENCY:ONCE A WEEK;?
     Route: 048
     Dates: start: 20181005, end: 20181012
  2. ISONIAZID. [Suspect]
     Active Substance: ISONIAZID
     Indication: LATENT TUBERCULOSIS
     Dosage: ?          QUANTITY:3 TABLET(S);OTHER FREQUENCY:EVERY WEEK;?
     Route: 048
     Dates: start: 20181005, end: 20181012

REACTIONS (10)
  - Pain [None]
  - Pyrexia [None]
  - Liver function test increased [None]
  - Chills [None]
  - Nausea [None]
  - Vomiting [None]
  - Hypotension [None]
  - Diarrhoea [None]
  - Presyncope [None]
  - Dyspnoea [None]

NARRATIVE: CASE EVENT DATE: 20181012
